FAERS Safety Report 8576480 (Version 5)
Quarter: 2013Q3

REPORT INFORMATION
  Report Type: Report from Study
  Country: US (occurrence: US)
  Receive Date: 20120523
  Receipt Date: 20130918
  Transmission Date: 20140515
  Serious: Yes (Hospitalization, Other)
  Sender: FDA-Public Use
  Company Number: US-ELI_LILLY_AND_COMPANY-US201202008391

PATIENT
  Age: 86 Year
  Sex: Female

DRUGS (3)
  1. TERIPARATIDE [Suspect]
     Indication: OSTEOPOROSIS
     Dosage: 20 UG, QD
  2. TERIPARATIDE [Suspect]
     Dosage: 20 UG, QD
  3. ANTIBIOTICS [Concomitant]

REACTIONS (14)
  - Multiple fractures [Unknown]
  - Lower limb fracture [Unknown]
  - Gastric disorder [Unknown]
  - Hip fracture [Unknown]
  - Cardiac disorder [Unknown]
  - Lower limb fracture [Recovering/Resolving]
  - Gastric disorder [Unknown]
  - Fall [Recovered/Resolved]
  - Scar [Unknown]
  - Malaise [Not Recovered/Not Resolved]
  - Balance disorder [Unknown]
  - Mental impairment [Unknown]
  - Patella fracture [Unknown]
  - Urinary tract infection [Unknown]
